FAERS Safety Report 25024342 (Version 1)
Quarter: 2025Q1

REPORT INFORMATION
  Report Type: Spontaneous
  Country: US (occurrence: US)
  Receive Date: 20250228
  Receipt Date: 20250228
  Transmission Date: 20250408
  Serious: Yes (Death, Other)
  Sender: AMGEN
  Company Number: US-AMGEN-USASP2025037855

PATIENT

DRUGS (2)
  1. PREDNISONE [Suspect]
     Active Substance: PREDNISONE
     Indication: Product used for unknown indication
     Route: 065
  2. CINACALCET HYDROCHLORIDE [Suspect]
     Active Substance: CINACALCET HYDROCHLORIDE
     Indication: Product used for unknown indication
     Route: 065

REACTIONS (9)
  - Cardiovascular disorder [Fatal]
  - Renal transplant failure [Fatal]
  - Infection [Fatal]
  - Neoplasm malignant [Fatal]
  - Hip fracture [Unknown]
  - Pelvic fracture [Unknown]
  - Humerus fracture [Unknown]
  - Forearm fracture [Unknown]
  - Fracture [Unknown]
